FAERS Safety Report 4805658-0 (Version None)
Quarter: 2005Q4

REPORT INFORMATION
  Report Type: 
  Country: None (occurrence: None)
  Receive Date: 20051021
  Receipt Date: 20050624
  Transmission Date: 20060501
  Serious: Yes (Hospitalization)
  Sender: FDA-Public Use
  Company Number: US-ROCHE-408803

PATIENT
  Age: 57 Year
  Sex: Female

DRUGS (14)
  1. PEG-INTERFERON ALFA 2A (RO 25-8310) [Suspect]
     Route: 058
     Dates: start: 20041110, end: 20050608
  2. PEG-INTERFERON ALFA 2A (RO 25-8310) [Suspect]
     Route: 058
     Dates: end: 20050719
  3. RIBAVIRIN [Suspect]
     Route: 048
     Dates: start: 20041110, end: 20050608
  4. RIBAVIRIN [Suspect]
     Route: 048
     Dates: end: 20050719
  5. TYLENOL (CAPLET) [Concomitant]
     Dates: start: 20041110
  6. GLIPIZIDE [Concomitant]
     Dates: start: 20050707
  7. TENORMIN [Concomitant]
     Indication: HYPERTENSION
     Route: 048
     Dates: start: 20050725
  8. GLYBURIDE [Concomitant]
  9. CHROMAGEN [Concomitant]
  10. ISONIAZID [Concomitant]
     Route: 048
     Dates: start: 20050818
  11. PIRAZINAMIDE [Concomitant]
     Dates: start: 20050818
  12. ETHAMBUTOL [Concomitant]
     Dates: start: 20050818
  13. RIFAMPIN [Concomitant]
     Dates: start: 20050818
  14. VITAMIN B6 [Concomitant]
     Dates: start: 20050818

REACTIONS (3)
  - HYPONATRAEMIA [None]
  - MENTAL STATUS CHANGES [None]
  - PERITONEAL TUBERCULOSIS [None]
